FAERS Safety Report 19991656 (Version 1)
Quarter: 2021Q4

REPORT INFORMATION
  Report Type: Spontaneous
  Country: KR (occurrence: KR)
  Receive Date: 20211025
  Receipt Date: 20211025
  Transmission Date: 20220303
  Serious: Yes (Other)
  Sender: FDA-Public Use
  Company Number: KR-NOVARTISPH-NVSC2021KR239164

PATIENT
  Age: 75 Year
  Sex: Male

DRUGS (4)
  1. BEOVU [Suspect]
     Active Substance: BROLUCIZUMAB-DBLL
     Indication: Polypoidal choroidal vasculopathy
     Dosage: UNK
     Route: 065
     Dates: start: 20210602
  2. BEOVU [Suspect]
     Active Substance: BROLUCIZUMAB-DBLL
     Dosage: UNK
     Route: 065
     Dates: start: 20210924
  3. EYLEA [Concomitant]
     Active Substance: AFLIBERCEPT
     Indication: Product used for unknown indication
     Dosage: UNK (RIGHT EYE)
     Route: 065
     Dates: start: 20210821
  4. EYLEA [Concomitant]
     Active Substance: AFLIBERCEPT
     Dosage: UNK (RIGHT EYE)
     Route: 065

REACTIONS (4)
  - Retinal cyst [Unknown]
  - Subretinal fluid [Unknown]
  - Concomitant disease aggravated [Unknown]
  - Visual impairment [Unknown]
